FAERS Safety Report 15611006 (Version 1)
Quarter: 2018Q4

REPORT INFORMATION
  Report Type: Spontaneous
  Country: US (occurrence: US)
  Receive Date: 20181113
  Receipt Date: 20181113
  Transmission Date: 20190205
  Serious: No
  Sender: FDA-Public Use
  Company Number: US-ROCHE-2154518

PATIENT
  Sex: Female

DRUGS (1)
  1. LUCENTIS [Suspect]
     Active Substance: RANIBIZUMAB
     Indication: PRODUCT USED FOR UNKNOWN INDICATION
     Route: 042
     Dates: start: 20180710

REACTIONS (4)
  - Ocular hyperaemia [Recovered/Resolved]
  - Eye pain [Unknown]
  - Eye haemorrhage [Recovered/Resolved]
  - Foreign body sensation in eyes [Unknown]
